FAERS Safety Report 6537892-6 (Version None)
Quarter: 2010Q1

REPORT INFORMATION
  Report Type: 
  Country: None (occurrence: None)
  Receive Date: 20100112
  Receipt Date: 20100112
  Transmission Date: 20100710
  Serious: Yes (Hospitalization)
  Sender: FDA-Public Use
  Company Number: None

PATIENT
  Age: 58 Year
  Sex: Male
  Weight: 75.5 kg

DRUGS (2)
  1. ERBITUX [Suspect]
     Indication: METASTASES TO LIVER
     Dosage: 400 MG/M2 ONCE IV DRIP
     Route: 041
     Dates: start: 20100106, end: 20100106
  2. ERBITUX [Suspect]
     Indication: OESOPHAGEAL CARCINOMA
     Dosage: 400 MG/M2 ONCE IV DRIP
     Route: 041
     Dates: start: 20100106, end: 20100106

REACTIONS (7)
  - CHILLS [None]
  - HEADACHE [None]
  - LUMBAR PUNCTURE ABNORMAL [None]
  - MENINGITIS [None]
  - MUSCULOSKELETAL STIFFNESS [None]
  - PAIN [None]
  - PYREXIA [None]
